FAERS Safety Report 26187201 (Version 1)
Quarter: 2025Q4

REPORT INFORMATION
  Report Type: Spontaneous
  Country: EU (occurrence: EU)
  Receive Date: 20251222
  Receipt Date: 20251222
  Transmission Date: 20260117
  Serious: Yes (Other)
  Sender: BAYER HEALTHCARE PHARMACEUTICALS INC.
  Company Number: EU-BAYER-2025A165928

PATIENT
  Age: 57 Year
  Sex: Female
  Weight: 92 kg

DRUGS (10)
  1. KERENDIA [Suspect]
     Active Substance: FINERENONE
     Dosage: 10 MG ONCE DAILY
  2. KERENDIA [Suspect]
     Active Substance: FINERENONE
     Dosage: UNK
  3. AMLODIPINE BESYLATE\PERINDOPRIL ERBUMINE [Concomitant]
     Active Substance: AMLODIPINE BESYLATE\PERINDOPRIL ERBUMINE
     Dosage: UNK UNK, QD
  4. MOXONIDINE [Concomitant]
     Active Substance: MOXONIDINE
     Dosage: 0.4 MG, QD
  5. METFORMIN\VILDAGLIPTIN [Concomitant]
     Active Substance: METFORMIN\VILDAGLIPTIN
     Dosage: UNK UNK, BID
  6. LEVOTHYROXINE [Concomitant]
     Active Substance: LEVOTHYROXINE
     Dosage: 125 ?G, QD
  7. PANTOPRAZOLE SODIUM [Concomitant]
     Active Substance: PANTOPRAZOLE SODIUM
     Dosage: 40 MG, QD
  8. Ezetimibe e atorvastatin eg [Concomitant]
     Dosage: UNK UNK, QD
  9. ASPIRIN [Concomitant]
     Active Substance: ASPIRIN
     Dosage: 100 MG, QD
  10. CLOPIDOGREL [Concomitant]
     Active Substance: CLOPIDOGREL BISULFATE
     Dosage: 75 MG, QD

REACTIONS (3)
  - Blood pressure systolic increased [None]
  - Urine albumin/creatinine ratio increased [None]
  - Albuminuria [None]
